FAERS Safety Report 7536298-0 (Version None)
Quarter: 2011Q2

REPORT INFORMATION
  Report Type: 
  Country: None (occurrence: None)
  Receive Date: 20110609
  Receipt Date: 20110330
  Transmission Date: 20111010
  Serious: No
  Sender: FDA-Public Use
  Company Number: US-KINGPHARMUSA00001-K201100383

PATIENT
  Age: 58 Year
  Sex: Female

DRUGS (1)
  1. EMBEDA [Suspect]
     Indication: INTERVERTEBRAL DISC DEGENERATION
     Dosage: 20 MG, BID
     Dates: start: 20100101

REACTIONS (4)
  - ABDOMINAL DISCOMFORT [None]
  - GASTROINTESTINAL HAEMORRHAGE [None]
  - ABDOMINAL PAIN [None]
  - DRUG EFFECT DECREASED [None]
